FAERS Safety Report 7092722-1 (Version None)
Quarter: 2010Q4

REPORT INFORMATION
  Report Type: 
  Country: None (occurrence: None)
  Receive Date: 20101110
  Receipt Date: 20101026
  Transmission Date: 20110411
  Serious: Yes (Hospitalization, Other)
  Sender: FDA-Public Use
  Company Number: US-SHIONOGI USA, INC-2010000062

PATIENT
  Age: 34 Year
  Sex: Female

DRUGS (2)
  1. EPINEPHRINE (GREENSTONE) [Suspect]
  2. CARVEDILOL [Concomitant]

REACTIONS (3)
  - EPINEPHRINE INCREASED [None]
  - INTENTIONAL DRUG MISUSE [None]
  - VENTRICULAR TACHYARRHYTHMIA [None]
